FAERS Safety Report 6540950-3 (Version None)
Quarter: 2010Q1

REPORT INFORMATION
  Report Type: 
  Country: None (occurrence: None)
  Receive Date: 20100118
  Receipt Date: 20100108
  Transmission Date: 20100710
  Serious: Yes (Other)
  Sender: FDA-Public Use
  Company Number: US-BAXTER-2009BH016661

PATIENT
  Age: 82 Year
  Sex: Male
  Weight: 88 kg

DRUGS (5)
  1. GAMMAGARD LIQUID [Suspect]
     Indication: CHRONIC INFLAMMATORY DEMYELINATING POLYRADICULONEUROPATHY
     Route: 042
     Dates: start: 20081201
  2. GAMMAGARD LIQUID [Suspect]
     Indication: OFF LABEL USE
     Route: 042
     Dates: start: 20081201
  3. ACCUPRIL [Concomitant]
     Indication: HYPERTENSION
  4. COUMADIN [Concomitant]
     Indication: HEART RATE IRREGULAR
  5. NEXIUM [Concomitant]

REACTIONS (3)
  - BORRELIA TEST POSITIVE [None]
  - CONDITION AGGRAVATED [None]
  - FATIGUE [None]
